FAERS Safety Report 10177600 (Version 2)
Quarter: 2014Q2

REPORT INFORMATION
  Report Type: Report from Study
  Country: MX (occurrence: MX)
  Receive Date: 20140516
  Receipt Date: 20140516
  Transmission Date: 20141212
  Serious: Yes (Hospitalization, Other)
  Sender: FDA-Public Use
  Company Number: PHHY2013MX082666

PATIENT
  Age: 32 Year
  Sex: Female

DRUGS (4)
  1. TEGRETOL [Suspect]
     Indication: TRIGEMINAL NEURALGIA
     Dosage: 2 DF, DAILY
     Route: 048
     Dates: start: 201305, end: 201312
  2. TEGRETOL [Suspect]
     Dosage: 6 DF, DAILY
     Route: 048
     Dates: start: 201312, end: 201401
  3. TEGRETOL [Suspect]
     Dosage: 1 DF, EVERY 8 HOURS
     Route: 048
     Dates: start: 201401, end: 201402
  4. TEGRETOL [Suspect]
     Dosage: 0.5 DF, DAILY
     Route: 048
     Dates: start: 201403

REACTIONS (3)
  - Nephrolithiasis [Recovered/Resolved]
  - Neuropathy peripheral [Not Recovered/Not Resolved]
  - Wrong technique in drug usage process [Not Recovered/Not Resolved]
